FAERS Safety Report 8232935-6 (Version None)
Quarter: 2012Q1

REPORT INFORMATION
  Report Type: 
  Country: None (occurrence: None)
  Receive Date: 20120325
  Receipt Date: 20120316
  Transmission Date: 20120608
  Serious: Yes (Hospitalization)
  Sender: FDA-Public Use
  Company Number: JP-VERTEX PHARMACEUTICALS INC.-AE-2012-003626

PATIENT
  Age: 57 Year
  Sex: Female

DRUGS (5)
  1. TELAVIC (TELAPREVIR) [Suspect]
     Indication: HEPATITIS C
     Route: 048
     Dates: start: 20120126
  2. PEG-INTRON [Concomitant]
     Dates: start: 20120202
  3. PEG-INTRON [Concomitant]
     Indication: HEPATITIS
     Route: 058
     Dates: start: 20120126, end: 20120202
  4. REBETOL [Concomitant]
     Indication: HEPATITIS C
     Route: 048
     Dates: start: 20120126, end: 20120202
  5. REBETOL [Concomitant]
     Dates: start: 20120202

REACTIONS (1)
  - TOXIC SKIN ERUPTION [None]
